FAERS Safety Report 8994990 (Version 1)
Quarter: 2013Q1

REPORT INFORMATION
  Report Type: Spontaneous
  Country: US (occurrence: None)
  Receive Date: 20121228
  Receipt Date: 20121228
  Transmission Date: 20140127
  Serious: Yes (Hospitalization)
  Sender: FDA-Public Use
  Company Number: None

PATIENT
  Sex: Male
  Weight: 121.6 kg

DRUGS (1)
  1. BENDAMUSTINE [Suspect]
     Dosage: 208 MG, IV
     Route: 042
     Dates: start: 20121113, end: 20121114

REACTIONS (3)
  - Viral infection [None]
  - Cough [None]
  - Hypotension [None]
